FAERS Safety Report 20849735 (Version 2)
Quarter: 2022Q2

REPORT INFORMATION
  Report Type: Spontaneous
  Country: JP (occurrence: JP)
  Receive Date: 20220519
  Receipt Date: 20220531
  Transmission Date: 20220720
  Serious: No
  Sender: FDA-Public Use
  Company Number: JP-GSKNCCC-Case-01490545_AE-58008

PATIENT

DRUGS (6)
  1. SOTROVIMAB [Suspect]
     Active Substance: SOTROVIMAB
     Indication: COVID-19
     Dosage: 500 MG, SINGLE DOSE
     Dates: start: 20220422
  2. URSODEOXYCHOLIC ACID TABLETS [Concomitant]
     Indication: Primary biliary cholangitis
     Dosage: 300 MG, TID
     Dates: start: 201807
  3. BEZAFIBRATE [Concomitant]
     Active Substance: BEZAFIBRATE
     Indication: Primary biliary cholangitis
     Dosage: 200 MG, BID
     Dates: start: 201901
  4. ROSUVASTATIN CALCIUM [Concomitant]
     Active Substance: ROSUVASTATIN CALCIUM
     Indication: Dyslipidaemia
     Dosage: 10 MG, QD
     Dates: start: 202109
  5. CALONAL [Concomitant]
     Active Substance: ACETAMINOPHEN
     Indication: Pyrexia
     Dosage: 400 MG, WHEN THE PATIENT HAD PYREXIA
     Dates: start: 20220422
  6. CALONAL [Concomitant]
     Active Substance: ACETAMINOPHEN
     Indication: COVID-19

REACTIONS (1)
  - Diarrhoea [Recovering/Resolving]

NARRATIVE: CASE EVENT DATE: 20220423
